FAERS Safety Report 21308814 (Version 2)
Quarter: 2022Q3

REPORT INFORMATION
  Report Type: Spontaneous
  Country: US (occurrence: US)
  Receive Date: 20220908
  Receipt Date: 20220909
  Transmission Date: 20221027
  Serious: Yes (Other)
  Sender: FDA-Public Use
  Company Number: US-JNJFOC-20220903054

PATIENT
  Sex: Female

DRUGS (3)
  1. REMICADE [Suspect]
     Active Substance: INFLIXIMAB
     Indication: Product used for unknown indication
     Route: 041
  2. STELARA [Suspect]
     Active Substance: USTEKINUMAB
     Indication: Product used for unknown indication
     Route: 058
     Dates: start: 202110
  3. STELARA [Suspect]
     Active Substance: USTEKINUMAB

REACTIONS (5)
  - Autoimmune thyroiditis [Unknown]
  - Autoimmune disorder [Unknown]
  - Fibromyalgia [Unknown]
  - Arthropathy [Unknown]
  - Drug ineffective [Unknown]
